FAERS Safety Report 18735679 (Version 2)
Quarter: 2021Q1

REPORT INFORMATION
  Report Type: Spontaneous
  Country: US (occurrence: US)
  Receive Date: 20210113
  Receipt Date: 20210219
  Transmission Date: 20210419
  Serious: Yes (Hospitalization)
  Sender: FDA-Public Use
  Company Number: US-ASTRAZENECA-2021A002842

PATIENT
  Age: 63 Year
  Sex: Female
  Weight: 97.5 kg

DRUGS (8)
  1. SYMBICORT [Suspect]
     Active Substance: BUDESONIDE\FORMOTEROL FUMARATE DIHYDRATE
     Indication: CHRONIC OBSTRUCTIVE PULMONARY DISEASE
     Dosage: 160?4.5 MCG, 2 PUFFS, TWICE A DAY
     Route: 055
     Dates: start: 2010
  2. POTASSIUM [Concomitant]
     Active Substance: POTASSIUM
     Route: 065
  3. DALIRESP [Suspect]
     Active Substance: ROFLUMILAST
     Indication: CHRONIC OBSTRUCTIVE PULMONARY DISEASE
     Route: 048
  4. FUROSEMIDE. [Concomitant]
     Active Substance: FUROSEMIDE
     Route: 065
  5. SYNTHROID [Concomitant]
     Active Substance: LEVOTHYROXINE SODIUM
     Indication: HYPOTHYROIDISM
     Route: 065
  6. VITAMIN D [Concomitant]
     Active Substance: VITAMIN D NOS
     Route: 065
  7. DALIRESP [Suspect]
     Active Substance: ROFLUMILAST
     Indication: CHRONIC OBSTRUCTIVE PULMONARY DISEASE
     Route: 048
     Dates: start: 2010
  8. SPIRIVA [Concomitant]
     Active Substance: TIOTROPIUM BROMIDE MONOHYDRATE
     Indication: CHRONIC OBSTRUCTIVE PULMONARY DISEASE
     Route: 065

REACTIONS (10)
  - Product dose omission issue [Not Recovered/Not Resolved]
  - Bronchitis [Unknown]
  - Device breakage [Unknown]
  - Pneumonia [Unknown]
  - Dyspnoea [Unknown]
  - Insomnia [Unknown]
  - Oxygen saturation decreased [Unknown]
  - Right ventricular failure [Unknown]
  - Somnolence [Unknown]
  - Bradykinesia [Unknown]

NARRATIVE: CASE EVENT DATE: 2017
